FAERS Safety Report 8263552-X (Version None)
Quarter: 2012Q2

REPORT INFORMATION
  Report Type: 
  Country: None (occurrence: None)
  Receive Date: 20120405
  Receipt Date: 20120328
  Transmission Date: 20120825
  Serious: Yes (Hospitalization, Other)
  Sender: FDA-Public Use
  Company Number: FR-GILEAD-2012-0050448

PATIENT
  Sex: Male

DRUGS (15)
  1. CYCLOPHOSPHAMIDE [Suspect]
     Dosage: UNK
     Route: 042
     Dates: start: 20110923
  2. OMEPRAZOLE [Concomitant]
     Dosage: 20 UNK, UNK
  3. CYCLOPHOSPHAMIDE [Suspect]
     Indication: SCLERODERMA
     Dosage: UNK
     Route: 042
     Dates: start: 20110826
  4. FUNGIZONE [Concomitant]
     Indication: PRODUCT USED FOR UNKNOWN INDICATION
     Dosage: UNK
  5. ZEFFIX [Concomitant]
     Indication: PRODUCT USED FOR UNKNOWN INDICATION
     Dosage: UNK
     Dates: start: 20000101, end: 20110101
  6. FLUCONAZOLE [Suspect]
     Dosage: 100 MG, UNK
     Route: 048
     Dates: start: 20110923, end: 20111021
  7. SYMBICORT [Concomitant]
  8. AZATHIOPRINE [Suspect]
     Indication: PRODUCT USED FOR UNKNOWN INDICATION
     Dosage: UNK
     Dates: start: 20050601
  9. POTASSIUM CHLORIDE [Concomitant]
     Indication: PRODUCT USED FOR UNKNOWN INDICATION
     Dosage: UNK
  10. PANTOPRAZOLE [Concomitant]
     Indication: PRODUCT USED FOR UNKNOWN INDICATION
     Dosage: UNK
  11. BACTRIM DS [Concomitant]
     Indication: PRODUCT USED FOR UNKNOWN INDICATION
     Dosage: 3 DF, Q1WK
     Route: 048
  12. PREDNISONE TAB [Concomitant]
     Indication: PRODUCT USED FOR UNKNOWN INDICATION
     Dosage: 17.5 MG, UNK
  13. CALCIDOSE                          /00108001/ [Concomitant]
     Indication: PRODUCT USED FOR UNKNOWN INDICATION
     Dosage: UNK
  14. VIREAD [Suspect]
     Indication: HEPATITIS B
     Dosage: 245 MG, QD
     Route: 048
     Dates: start: 20110826
  15. MESNA [Concomitant]
     Dosage: UNK

REACTIONS (5)
  - DRUG INTERACTION [None]
  - HEPATITIS B [None]
  - TRANSAMINASES INCREASED [None]
  - VIRAL LOAD INCREASED [None]
  - DRUG INEFFECTIVE [None]
